FAERS Safety Report 7125062-2 (Version None)
Quarter: 2010Q4

REPORT INFORMATION
  Report Type: 
  Country: None (occurrence: None)
  Receive Date: 20101123
  Receipt Date: 20101123
  Transmission Date: 20110411
  Serious: No
  Sender: FDA-Public Use
  Company Number: None

PATIENT

DRUGS (1)
  1. CHANTIX [Suspect]

REACTIONS (10)
  - ABNORMAL BEHAVIOUR [None]
  - ALCOHOL PROBLEM [None]
  - ANXIETY [None]
  - DECREASED INTEREST [None]
  - HUNGER [None]
  - LOGORRHOEA [None]
  - PARTNER STRESS [None]
  - PSYCHOMOTOR HYPERACTIVITY [None]
  - SCREAMING [None]
  - WITHDRAWAL SYNDROME [None]
